FAERS Safety Report 4770660-4 (Version None)
Quarter: 2005Q3

REPORT INFORMATION
  Report Type: 
  Country: None (occurrence: None)
  Receive Date: 20050915
  Receipt Date: 20050907
  Transmission Date: 20060218
  Serious: Yes (Death, Hospitalization)
  Sender: FDA-Public Use
  Company Number: US-JNJFOC-20050902030

PATIENT
  Age: 81 Year
  Sex: Male

DRUGS (4)
  1. ACETAMINOPHEN [Suspect]
     Route: 048
  2. ACETAMINOPHEN [Suspect]
     Route: 048
  3. DRAIN CLEANER [Suspect]
     Route: 048
  4. NAPROXEN [Suspect]
     Route: 048

REACTIONS (32)
  - ABDOMINAL PAIN [None]
  - ALCOHOL POISONING [None]
  - BLOOD BICARBONATE DECREASED [None]
  - BLOOD CHLORIDE INCREASED [None]
  - BLOOD CREATININE INCREASED [None]
  - BLOOD OSMOLARITY INCREASED [None]
  - BLOOD PH DECREASED [None]
  - BLOOD POTASSIUM INCREASED [None]
  - BLOOD SODIUM INCREASED [None]
  - BLOOD UREA INCREASED [None]
  - BODY TEMPERATURE DECREASED [None]
  - CARDIAC ARREST [None]
  - COMPLETED SUICIDE [None]
  - EROSIVE OESOPHAGITIS [None]
  - GASTROINTESTINAL HAEMORRHAGE [None]
  - GENERAL PHYSICAL HEALTH DETERIORATION [None]
  - HAEMOGLOBIN INCREASED [None]
  - HYPERKALAEMIA [None]
  - HYPOTENSION [None]
  - INTENTIONAL MISUSE [None]
  - LARYNGEAL ULCERATION [None]
  - LUNG INFILTRATION [None]
  - METABOLIC ACIDOSIS [None]
  - OVERDOSE [None]
  - PHARYNGEAL EROSION [None]
  - PO2 INCREASED [None]
  - PULMONARY NECROSIS [None]
  - RENAL FAILURE [None]
  - RESPIRATORY ACIDOSIS [None]
  - RESPIRATORY DISTRESS [None]
  - RESPIRATORY RATE INCREASED [None]
  - URINE KETONE BODY PRESENT [None]
